FAERS Safety Report 8113052-2 (Version None)
Quarter: 2012Q1

REPORT INFORMATION
  Report Type: 
  Country: None (occurrence: None)
  Receive Date: 20120203
  Receipt Date: 20120201
  Transmission Date: 20120608
  Serious: Yes (Hospitalization)
  Sender: FDA-Public Use
  Company Number: US-GLAXOSMITHKLINE-A0958171A

PATIENT
  Age: 69 Year
  Sex: Female

DRUGS (7)
  1. VITAMIN TAB [Concomitant]
  2. HYDROCODONE BITARTRATE [Concomitant]
  3. PREMARIN [Concomitant]
  4. XANAX [Concomitant]
  5. RYTHMOL SR [Suspect]
     Indication: ATRIAL FIBRILLATION
     Dosage: 400MG TWICE PER DAY
     Route: 048
  6. LEVOTHYROXINE SODIUM [Concomitant]
  7. CITALOPRAM HYDROBROMIDE [Concomitant]

REACTIONS (7)
  - ASTHENIA [None]
  - HEADACHE [None]
  - CEREBROVASCULAR ACCIDENT [None]
  - SENSORY LOSS [None]
  - HYPOAESTHESIA [None]
  - FALL [None]
  - BALANCE DISORDER [None]
